FAERS Safety Report 5827471-8 (Version None)
Quarter: 2008Q3

REPORT INFORMATION
  Report Type: 
  Country: None (occurrence: None)
  Receive Date: 20080730
  Receipt Date: 20080723
  Transmission Date: 20090109
  Serious: Yes (Other)
  Sender: FDA-Public Use
  Company Number: US-ASTRAZENECA-2008UW14531

PATIENT
  Age: 56 Year
  Sex: Female
  Weight: 60.3 kg

DRUGS (3)
  1. ARIMIDEX [Suspect]
     Indication: BREAST CANCER
     Route: 048
     Dates: start: 20070101
  2. PREVACID [Concomitant]
  3. UROCIT [Concomitant]

REACTIONS (4)
  - HOT FLUSH [None]
  - JOINT STIFFNESS [None]
  - MENOPAUSAL SYMPTOMS [None]
  - RENAL SURGERY [None]
